FAERS Safety Report 8274134-8 (Version None)
Quarter: 2012Q2

REPORT INFORMATION
  Report Type: 
  Country: None (occurrence: None)
  Receive Date: 20120411
  Receipt Date: 20120405
  Transmission Date: 20120825
  Serious: No
  Sender: FDA-Public Use
  Company Number: US-PFIZER INC-2012087159

PATIENT
  Age: 55 Year
  Sex: Male

DRUGS (1)
  1. FLECTOR [Suspect]
     Indication: BACK PAIN
     Dosage: UNK, 2X/DAY
     Dates: start: 20120314, end: 20120101

REACTIONS (1)
  - BLISTER [None]
